FAERS Safety Report 5114791-8 (Version None)
Quarter: 2006Q3

REPORT INFORMATION
  Report Type: 
  Country: None (occurrence: None)
  Receive Date: 20060921
  Receipt Date: 20060905
  Transmission Date: 20061208
  Serious: Yes (Other)
  Sender: FDA-Public Use
  Company Number: FACT0600349

PATIENT
  Age: 27 Year
  Sex: Female
  Weight: 51 kg

DRUGS (1)
  1. FACTIVE [Suspect]
     Indication: ALLERGIC SINUSITIS
     Dosage: 320 MG, QD, ORAL
     Route: 048
     Dates: start: 20060903, end: 20060903

REACTIONS (3)
  - HEADACHE [None]
  - PRURITUS [None]
  - SELF-MEDICATION [None]
